FAERS Safety Report 8261306-1 (Version None)
Quarter: 2012Q2

REPORT INFORMATION
  Report Type: 
  Country: None (occurrence: None)
  Receive Date: 20120402
  Receipt Date: 20120319
  Transmission Date: 20120825
  Serious: Yes (Other)
  Sender: FDA-Public Use
  Company Number: 2012P1010195

PATIENT
  Age: 52 Year
  Sex: Male

DRUGS (3)
  1. CIPROFLOXACIN HYDROCHLORIDE [Concomitant]
  2. CEFOTAXIME [Suspect]
     Indication: CELLULITIS ORBITAL
     Dosage: 3 GM;QD;IV
     Route: 042
  3. FOSFOMYCIN [Concomitant]

REACTIONS (1)
  - DRUG RASH WITH EOSINOPHILIA AND SYSTEMIC SYMPTOMS [None]
